FAERS Safety Report 19933862 (Version 3)
Quarter: 2021Q4

REPORT INFORMATION
  Report Type: Spontaneous
  Country: AR (occurrence: AR)
  Receive Date: 20211008
  Receipt Date: 20211209
  Transmission Date: 20220303
  Serious: Yes (Hospitalization, Other)
  Sender: FDA-Public Use
  Company Number: AR-PFIZER INC-2021734250

PATIENT
  Age: 50 Year
  Sex: Male

DRUGS (1)
  1. SUTENT [Suspect]
     Active Substance: SUNITINIB MALATE
     Indication: Metastatic renal cell carcinoma
     Dosage: 37.5 MG (NO REST)
     Dates: start: 20181210, end: 202106

REACTIONS (8)
  - COVID-19 [Not Recovered/Not Resolved]
  - Haemorrhage [Unknown]
  - Limb injury [Unknown]
  - Malaise [Recovering/Resolving]
  - Skin disorder [Unknown]
  - Diarrhoea [Unknown]
  - Musculoskeletal disorder [Unknown]
  - Pain [Unknown]

NARRATIVE: CASE EVENT DATE: 20210101
